FAERS Safety Report 16972174 (Version 4)
Quarter: 2020Q1

REPORT INFORMATION
  Report Type: Report from Study
  Country: US (occurrence: US)
  Receive Date: 20191029
  Receipt Date: 20200309
  Transmission Date: 20200409
  Serious: Yes (Hospitalization, Other)
  Sender: FDA-Public Use
  Company Number: US-ACTELION-A-NJ2019-197475

PATIENT
  Age: 52 Year
  Sex: Male
  Weight: 85.26 kg

DRUGS (42)
  1. UPTRAVI [Suspect]
     Active Substance: SELEXIPAG
     Indication: PULMONARY ARTERIAL HYPERTENSION
     Dosage: 1400 MCG, BID
     Route: 048
     Dates: start: 20191111
  2. UPTRAVI [Suspect]
     Active Substance: SELEXIPAG
     Dosage: 600 MCG, BID
     Route: 048
  3. SILDENAFIL. [Concomitant]
     Active Substance: SILDENAFIL
     Dosage: 20 MG, TID
     Route: 048
  4. ASPIRIN. [Concomitant]
     Active Substance: ASPIRIN
     Dosage: 81 MG, QD, EVERY NIGHT AT BEDTIME
  5. METOPROLOL. [Concomitant]
     Active Substance: METOPROLOL
     Dosage: 25 MG, BID
     Route: 048
  6. PROMETHAZINE [Concomitant]
     Active Substance: PROMETHAZINE HYDROCHLORIDE
     Dosage: 25 MG, PRN, EVERY 6 HOURS
  7. OXYGEN. [Concomitant]
     Active Substance: OXYGEN
     Dosage: 2 L, ON EXERTION
  8. METOLAZONE. [Concomitant]
     Active Substance: METOLAZONE
     Dosage: 2.5 MG, QD, PRN
     Route: 048
  9. PREDNISONE. [Concomitant]
     Active Substance: PREDNISONE
     Dosage: 20 MG, QD FOR 6 DAYS
     Route: 048
  10. COUMADIN [Concomitant]
     Active Substance: WARFARIN SODIUM
  11. BUMETANIDE. [Concomitant]
     Active Substance: BUMETANIDE
     Dosage: 1 MG, BID
     Route: 048
  12. WARFARIN [Concomitant]
     Active Substance: WARFARIN
     Dosage: 25 MG
  13. AZATHIOPRINE. [Concomitant]
     Active Substance: AZATHIOPRINE
     Dosage: 100 MG, QD
  14. CALCIUM CARBONATE. [Concomitant]
     Active Substance: CALCIUM CARBONATE
     Dosage: 600 MG, EVERY MONDAY, WEDNESDAY AND FRIDAY
  15. TACROLIMUS. [Concomitant]
     Active Substance: TACROLIMUS
     Dosage: 3 MG, QAM
     Route: 048
  16. OXYGEN. [Concomitant]
     Active Substance: OXYGEN
     Dosage: 2 L, AT REST
  17. UPTRAVI [Suspect]
     Active Substance: SELEXIPAG
     Dosage: UNK
     Route: 048
     Dates: start: 20191017
  18. AZATHIOPRINE. [Concomitant]
     Active Substance: AZATHIOPRINE
     Dosage: 125 UNK
     Route: 048
  19. METOPROLOL. [Concomitant]
     Active Substance: METOPROLOL
     Dosage: 1.5 DF
     Route: 048
  20. PRAVASTATIN. [Concomitant]
     Active Substance: PRAVASTATIN
     Dosage: 20 MG, QPM
     Route: 048
  21. TACROLIMUS. [Concomitant]
     Active Substance: TACROLIMUS
     Dosage: 0.5 MG, QD
  22. TACROLIMUS. [Concomitant]
     Active Substance: TACROLIMUS
     Dosage: 2 MG, QPM
     Route: 048
  23. PROBENECID. [Concomitant]
     Active Substance: PROBENECID
     Dosage: 500 MG, BID
     Route: 048
  24. VITAMIN D3 [Concomitant]
     Active Substance: CHOLECALCIFEROL
     Dosage: 1000 U, QD
     Route: 048
  25. MIDODRINE [Concomitant]
     Active Substance: MIDODRINE
     Dosage: 5 MG, TID AS NEEDED
  26. VITAMIN B6 [Concomitant]
     Active Substance: PYRIDOXINE HYDROCHLORIDE
     Dosage: 50 MG, QD
     Route: 048
  27. TORSEMIDE. [Concomitant]
     Active Substance: TORSEMIDE
     Dosage: 10 MG, QOD
  28. TYLENOL [Concomitant]
     Active Substance: ACETAMINOPHEN
     Dosage: 500 MG, PRN
     Route: 048
  29. FERROUS SULFATE. [Concomitant]
     Active Substance: FERROUS SULFATE
     Dosage: 325 MG, QD
     Route: 048
  30. OMEPRAZOLE. [Concomitant]
     Active Substance: OMEPRAZOLE
     Dosage: 20 MG, QPM
     Route: 048
  31. OXYCODONE [Concomitant]
     Active Substance: OXYCODONE
     Dosage: 5 MG, PRN, EVERY 4 HOURS
  32. TACROLIMUS. [Concomitant]
     Active Substance: TACROLIMUS
     Dosage: 1 MG, BID
     Route: 048
  33. BACLOFEN. [Concomitant]
     Active Substance: BACLOFEN
     Dosage: 10 MG, TID
  34. CLINDAMYCIN. [Concomitant]
     Active Substance: CLINDAMYCIN
     Dosage: 300 MG
  35. MULTIVITAMINS W/MINERALS [Concomitant]
     Active Substance: MINERALS\VITAMINS
     Dosage: 1 DF, QD
     Route: 048
  36. PRAVASTATIN. [Concomitant]
     Active Substance: PRAVASTATIN
     Dosage: 20 MG, QAM
     Route: 048
  37. TORSEMIDE. [Concomitant]
     Active Substance: TORSEMIDE
     Dosage: 5 MG, QOD
  38. FLU VACCINE VII [Concomitant]
     Active Substance: INFLUENZA VIRUS VACCINE
  39. SILDENAFIL. [Concomitant]
     Active Substance: SILDENAFIL
     Dosage: 20 MG, QD
  40. BRIMONIDINE [Concomitant]
     Active Substance: BRIMONIDINE TARTRATE
     Dosage: 1 DROP IN BOTH EYES, BID
  41. OXYCODONE-ACET [Concomitant]
     Active Substance: ACETAMINOPHEN\OXYCODONE HYDROCHLORIDE
     Dosage: 5-325 EVERY 4 HOURS
  42. OXYGEN. [Concomitant]
     Active Substance: OXYGEN
     Dosage: 2 L, AT REST

REACTIONS (56)
  - Feeling hot [Recovering/Resolving]
  - Blood creatinine increased [Recovering/Resolving]
  - Red blood cell count decreased [Unknown]
  - Neutrophil percentage increased [Unknown]
  - Rhinovirus infection [Recovered/Resolved]
  - Tachycardia [Recovering/Resolving]
  - Haematocrit decreased [Unknown]
  - Mean cell volume increased [Unknown]
  - Lymphocyte count decreased [Unknown]
  - Abdominal pain [Unknown]
  - Left ventricular failure [Recovering/Resolving]
  - Pain in extremity [Recovering/Resolving]
  - Acute kidney injury [Recovering/Resolving]
  - Gout [Recovering/Resolving]
  - Erythema [Recovering/Resolving]
  - Biopsy kidney [Unknown]
  - Blood urea increased [Unknown]
  - Blood potassium increased [Unknown]
  - Fatigue [Unknown]
  - Electrocardiogram QT prolonged [Unknown]
  - Pneumonia [Recovered/Resolved]
  - Atrial fibrillation [Recovering/Resolving]
  - Haemoglobin decreased [Unknown]
  - Asthenia [Unknown]
  - Diarrhoea [Unknown]
  - Malaise [Unknown]
  - Interstitial lung disease [Recovering/Resolving]
  - Peripheral swelling [Recovering/Resolving]
  - Cardiac failure [Recovering/Resolving]
  - International normalised ratio increased [Unknown]
  - Blood glucose increased [Unknown]
  - Lymphocyte percentage decreased [Unknown]
  - Hyperkalaemia [Unknown]
  - Hypophagia [Unknown]
  - Dyspnoea [Unknown]
  - Chest discomfort [Unknown]
  - Sleep apnoea syndrome [Recovering/Resolving]
  - Tenderness [Recovering/Resolving]
  - Diastolic dysfunction [Recovered/Resolved]
  - Platelet count decreased [Unknown]
  - Fluid overload [Recovering/Resolving]
  - Productive cough [Recovering/Resolving]
  - Aspiration joint [Unknown]
  - Respiratory failure [Unknown]
  - Neutrophil count increased [Unknown]
  - Coagulopathy [Unknown]
  - Pulmonary arterial hypertension [Recovering/Resolving]
  - Cardiac failure congestive [Recovering/Resolving]
  - Chronic kidney disease [Recovering/Resolving]
  - Glomerular filtration rate decreased [Unknown]
  - Red cell distribution width increased [Unknown]
  - Prothrombin time prolonged [Unknown]
  - Back pain [Unknown]
  - Arthralgia [Unknown]
  - Cough [Not Recovered/Not Resolved]
  - Drug interaction [Unknown]

NARRATIVE: CASE EVENT DATE: 20191201
